FAERS Safety Report 20082395 (Version 19)
Quarter: 2023Q1

REPORT INFORMATION
  Report Type: Report from Study
  Country: CA (occurrence: CA)
  Receive Date: 20211117
  Receipt Date: 20230112
  Transmission Date: 20230417
  Serious: Yes (Death, Other)
  Sender: FDA-Public Use
  Company Number: CA-OTSUKA-2021_039422

PATIENT
  Age: 80 Year
  Sex: Male

DRUGS (4)
  1. CEDAZURIDINE\DECITABINE [Suspect]
     Active Substance: CEDAZURIDINE\DECITABINE
     Indication: Myelodysplastic syndrome
     Dosage: 5 PILLS PER EVERY 28 DAYS CYCLE
     Route: 065
     Dates: start: 20211012
  2. CEDAZURIDINE\DECITABINE [Suspect]
     Active Substance: CEDAZURIDINE\DECITABINE
     Dosage: 4 PILLS PER CYCLE OF EVERY 6 WEEKS
     Route: 065
  3. SENNOSIDES A AND B [Concomitant]
     Active Substance: SENNOSIDES A AND B
     Indication: Product used for unknown indication
     Dosage: UNK
     Route: 065
  4. POLYETHYLENE GLYCOL 3350 [Concomitant]
     Active Substance: POLYETHYLENE GLYCOL 3350
     Indication: Product used for unknown indication
     Dosage: UNK
     Route: 065

REACTIONS (24)
  - Death [Fatal]
  - Red blood cell transfusion [Unknown]
  - Platelet transfusion [Unknown]
  - Renal impairment [Unknown]
  - Platelet count decreased [Unknown]
  - Eye disorder [Unknown]
  - Alopecia [Unknown]
  - Taste disorder [Unknown]
  - Hair disorder [Unknown]
  - Eastern Cooperative Oncology Group performance status worsened [Unknown]
  - Biopsy bone marrow [Unknown]
  - General physical health deterioration [Unknown]
  - Constipation [Recovering/Resolving]
  - Peripheral swelling [Unknown]
  - Joint swelling [Unknown]
  - Abdominal pain upper [Unknown]
  - Stomatitis [Recovering/Resolving]
  - Asthenia [Unknown]
  - Epistaxis [Unknown]
  - Cough [Unknown]
  - Fatigue [Unknown]
  - Epistaxis [Recovered/Resolved]
  - Haemoglobin decreased [Unknown]
  - Therapy interrupted [Unknown]

NARRATIVE: CASE EVENT DATE: 20221221
